FAERS Safety Report 7297220-8 (Version None)
Quarter: 2011Q1

REPORT INFORMATION
  Report Type: 
  Country: None (occurrence: None)
  Receive Date: 20110216
  Receipt Date: 20110210
  Transmission Date: 20110831
  Serious: Yes (Other)
  Sender: FDA-Public Use
  Company Number: US-SANOFI-AVENTIS-2011SA009314

PATIENT
  Age: 32 Year
  Sex: Female

DRUGS (3)
  1. NOVOLOG [Concomitant]
     Dosage: DOSE:4 UNIT(S)
     Route: 065
  2. SOLOSTAR [Suspect]
     Dates: start: 20100101
  3. LANTUS [Suspect]
     Indication: TYPE 2 DIABETES MELLITUS
     Dosage: DOSE:48 UNIT(S)
     Route: 058
     Dates: start: 20100101

REACTIONS (2)
  - PNEUMONIA [None]
  - BLOOD GLUCOSE INCREASED [None]
